FAERS Safety Report 9368660 (Version 1)
Quarter: 2013Q2

REPORT INFORMATION
  Report Type: Spontaneous
  Country: US (occurrence: US)
  Receive Date: 20130626
  Receipt Date: 20130626
  Transmission Date: 20140414
  Serious: No
  Sender: FDA-Public Use
  Company Number: US-ASTELLAS-2013US001165

PATIENT
  Sex: Male
  Weight: 66 kg

DRUGS (1)
  1. VESICARE [Suspect]
     Indication: HYPERTONIC BLADDER
     Dosage: 5 MG, UID/QD
     Route: 048
     Dates: start: 2012, end: 201212

REACTIONS (3)
  - Haemorrhoids [Unknown]
  - Vision blurred [Recovering/Resolving]
  - Constipation [Recovering/Resolving]
